FAERS Safety Report 11365784 (Version 5)
Quarter: 2017Q2

REPORT INFORMATION
  Report Type: Report from Study
  Country: US (occurrence: US)
  Receive Date: 20150811
  Receipt Date: 20170417
  Transmission Date: 20170829
  Serious: Yes (Other)
  Sender: FDA-Public Use
  Company Number: PHHY2014US084071

PATIENT
  Age: 48 Year
  Sex: Female

DRUGS (1)
  1. GILENYA [Suspect]
     Active Substance: FINGOLIMOD HYDROCHLORIDE
     Indication: MULTIPLE SCLEROSIS
     Dosage: QD
     Route: 048

REACTIONS (7)
  - Ophthalmoplegia [Not Recovered/Not Resolved]
  - Blood bilirubin increased [Unknown]
  - Lymphocyte count decreased [Unknown]
  - High density lipoprotein increased [Unknown]
  - Gamma-glutamyltransferase decreased [Unknown]
  - White blood cell count decreased [Unknown]
  - Extensor plantar response [Not Recovered/Not Resolved]

NARRATIVE: CASE EVENT DATE: 20140508
